FAERS Safety Report 18794776 (Version 2)
Quarter: 2021Q2

REPORT INFORMATION
  Report Type: Report from Study
  Country: US (occurrence: US)
  Receive Date: 20210127
  Receipt Date: 20210615
  Transmission Date: 20210717
  Serious: Yes (Other)
  Sender: FDA-Public Use
  Company Number: US-MYLANLABS-2021M1005141

PATIENT
  Age: 29 Year
  Sex: Male
  Weight: 170 kg

DRUGS (2)
  1. HALDOL [Concomitant]
     Active Substance: HALOPERIDOL
     Dosage: UNK
  2. CLOZAPINE. [Suspect]
     Active Substance: CLOZAPINE
     Indication: PSYCHOTIC DISORDER
     Dosage: 50 MILLIGRAM
     Route: 048
     Dates: start: 20201213, end: 20210110

REACTIONS (1)
  - Neutropenia [Recovered/Resolved]

NARRATIVE: CASE EVENT DATE: 20210103
